FAERS Safety Report 4673900-5 (Version None)
Quarter: 2005Q2

REPORT INFORMATION
  Report Type: 
  Country: None (occurrence: None)
  Receive Date: 20050524
  Receipt Date: 20050504
  Transmission Date: 20051028
  Serious: Yes (Death, Life-Threatening, Hospitalization, Disabling)
  Sender: FDA-Public Use
  Company Number: EWC050543914

PATIENT
  Age: 79 Year
  Sex: Female

DRUGS (18)
  1. FORTEO [Suspect]
     Indication: OSTEOPOROSIS
     Dosage: 20 UG/1 DAY
     Dates: start: 20041026, end: 20050320
  2. REMERON(MIRTAZAPINE ORIFARM) [Concomitant]
  3. CITADON [Concomitant]
  4. SALURES-K [Concomitant]
  5. LOMIR SRO (ISRADIPINE) [Concomitant]
  6. ENALAPRIL MALEATE [Concomitant]
  7. FOLACIN [Concomitant]
  8. CALCICHEW D3 [Concomitant]
  9. PLAVIX [Concomitant]
  10. FURIX RETARD (FUROSEMIDE) [Concomitant]
  11. SYMBICORT FORTE TURBUHALER [Concomitant]
  12. OXIS TURBUHALER  (FORMOTEROL FUMARATE) [Concomitant]
  13. SOBRIL (OXAZEPAM) [Concomitant]
  14. XANOR (ALPRAZOLAM DUM) [Concomitant]
  15. SPIRIVA [Concomitant]
  16. ZOCORD (SIMVASTATIN RATIOPHARM) [Concomitant]
  17. FENURIL [Concomitant]
  18. TRIOBE [Concomitant]

REACTIONS (6)
  - ASTHENIA [None]
  - CARDIOPULMONARY FAILURE [None]
  - HYPONATRAEMIA [None]
  - RESPIRATORY DISORDER [None]
  - SKIN ULCER [None]
  - WEIGHT DECREASED [None]
